FAERS Safety Report 16360773 (Version 2)
Quarter: 2019Q2

REPORT INFORMATION
  Report Type: Report from Study
  Country: US (occurrence: US)
  Receive Date: 20190528
  Receipt Date: 20190619
  Transmission Date: 20190711
  Serious: Yes (Hospitalization, Disabling, Other)
  Sender: FDA-Public Use
  Company Number: US-REGENERON PHARMACEUTICALS, INC.-2019-33325

PATIENT

DRUGS (8)
  1. LOSARTAN POTASSIUM. [Concomitant]
     Active Substance: LOSARTAN POTASSIUM
     Indication: BLOOD PRESSURE MEASUREMENT
     Dosage: 50 MG
  2. EYLEA [Suspect]
     Active Substance: AFLIBERCEPT
     Indication: PRODUCT USED FOR UNKNOWN INDICATION
     Dosage: EVERY 4 WEEKS, BOTH EYES
     Route: 031
  3. CENTRUM SILVER                     /02363801/ [Concomitant]
     Active Substance: MINERALS\VITAMINS
     Indication: PRODUCT USED FOR UNKNOWN INDICATION
  4. EYLEA [Suspect]
     Active Substance: AFLIBERCEPT
     Dosage: EVERY 2 MONTHS, RIGHT EYE
     Route: 031
  5. SIMVASTATIN. [Suspect]
     Active Substance: SIMVASTATIN
     Indication: BLOOD CHOLESTEROL ABNORMAL
  6. OCUVITE [Concomitant]
     Active Substance: VITAMINS
     Indication: PRODUCT USED FOR UNKNOWN INDICATION
  7. EYLEA [Suspect]
     Active Substance: AFLIBERCEPT
     Dosage: EVERY 5 WEEKS, BOTH EYES
     Route: 031
  8. EYLEA [Suspect]
     Active Substance: AFLIBERCEPT
     Dosage: EVERY 2 MONTHS, BOTH EYES
     Route: 031

REACTIONS (13)
  - Blood pressure abnormal [Unknown]
  - Blindness unilateral [Unknown]
  - Hyperhidrosis [Unknown]
  - Hernia [Unknown]
  - Gastric dilatation [Unknown]
  - Hypoacusis [Unknown]
  - Abdominal discomfort [Unknown]
  - Dysuria [Unknown]
  - Drug ineffective [Unknown]
  - Cataract [Unknown]
  - Abdominal pain [Unknown]
  - Ear disorder [Unknown]
  - Eye injury [Unknown]

NARRATIVE: CASE EVENT DATE: 20161207
